FAERS Safety Report 6938474-4 (Version None)
Quarter: 2010Q3

REPORT INFORMATION
  Report Type: 
  Country: None (occurrence: None)
  Receive Date: 20100818
  Receipt Date: 20100804
  Transmission Date: 20110219
  Serious: Yes (Hospitalization)
  Sender: FDA-Public Use
  Company Number: B0669680A

PATIENT
  Age: 40 Year
  Sex: Male

DRUGS (6)
  1. COMBIVIR [Suspect]
     Indication: HIV INFECTION
  2. ABACAVIR SULFATE [Suspect]
     Indication: HIV INFECTION
  3. LOPINAVIR AND RITONAVIR [Suspect]
     Indication: HIV INFECTION
  4. TENOFOVIR DISOPROXIL FUMARATE [Suspect]
     Indication: HIV INFECTION
  5. EPZICOM [Suspect]
     Indication: HIV INFECTION
  6. RIFAMPICIN [Suspect]

REACTIONS (5)
  - ERYTHEMA [None]
  - LEPROSY [None]
  - RASH PAPULAR [None]
  - SKIN LESION [None]
  - TREATMENT NONCOMPLIANCE [None]
